FAERS Safety Report 25052826 (Version 1)
Quarter: 2025Q1

REPORT INFORMATION
  Report Type: Spontaneous
  Country: US (occurrence: US)
  Receive Date: 20250307
  Receipt Date: 20250307
  Transmission Date: 20250409
  Serious: No
  Sender: SANOFI AVENTIS
  Company Number: US-SA-2025SA061439

PATIENT
  Sex: Female

DRUGS (1)
  1. DUPIXENT [Suspect]
     Active Substance: DUPILUMAB
     Indication: Dermatitis atopic
     Dosage: 300 MG, QOW
     Route: 058
     Dates: start: 20241101

REACTIONS (4)
  - Impaired quality of life [Not Recovered/Not Resolved]
  - Eye irritation [Not Recovered/Not Resolved]
  - Asthma [Recovering/Resolving]
  - Conjunctivitis [Not Recovered/Not Resolved]
